FAERS Safety Report 20438934 (Version 1)
Quarter: 2022Q1

REPORT INFORMATION
  Report Type: Spontaneous
  Country: US (occurrence: None)
  Receive Date: 20220204
  Receipt Date: 20220204
  Transmission Date: 20220424
  Serious: Yes (Disabling)
  Sender: FDA-Public Use
  Company Number: None

PATIENT
  Age: 79 Year
  Sex: Male
  Weight: 75.6 kg

DRUGS (13)
  1. ALENDRONATE SODIUM [Suspect]
     Active Substance: ALENDRONATE SODIUM
     Indication: Bone disorder
     Dosage: OTHER QUANTITY : 1 TABLET(S);?FREQUENCY : DAILY;?
     Route: 048
     Dates: start: 20180410, end: 20220109
  2. LOSARTAN POTASSIUM [Concomitant]
  3. ATORVASTATIN CALCIUM [Concomitant]
  4. ATENOLOL [Concomitant]
  5. CLOPIDOGREL [Concomitant]
  6. VITAMIN D3 [Concomitant]
     Active Substance: CHOLECALCIFEROL
  7. CALCIUM PLUS D3 [Concomitant]
  8. COENZYME Q10 [Concomitant]
     Active Substance: DIETARY SUPPLEMENT\UBIDECARENONE
  9. VITAMIN C [Concomitant]
     Active Substance: ASCORBIC ACID
  10. VITAMIN B12 [Concomitant]
     Active Substance: CYANOCOBALAMIN
  11. OMEGA-3 FISH OIL [Concomitant]
  12. MAGNIZIUM CITRATE [Concomitant]
  13. CINNAMON [Concomitant]
     Active Substance: CINNAMON

REACTIONS (10)
  - Arthralgia [None]
  - Groin pain [None]
  - Testicular pain [None]
  - Pain in extremity [None]
  - Pain in extremity [None]
  - Burning sensation [None]
  - Peripheral swelling [None]
  - Eye pain [None]
  - Headache [None]
  - Sleep disorder [None]

NARRATIVE: CASE EVENT DATE: 20220109
